FAERS Safety Report 8521344 (Version 7)
Quarter: 2015Q1

REPORT INFORMATION
  Report Type: Spontaneous
  Country: US (occurrence: US)
  Receive Date: 20120419
  Receipt Date: 20150331
  Transmission Date: 20150721
  Serious: Yes (Other)
  Sender: FDA-Public Use
  Company Number: US-PFIZER INC-2009201742

PATIENT
  Age: 70 Year
  Sex: Female
  Weight: 61 kg

DRUGS (14)
  1. XALATAN [Suspect]
     Active Substance: LATANOPROST
     Indication: GLAUCOMA
     Dosage: 1 DROP IN EACH EYE ONCE A DAY
     Route: 047
     Dates: start: 200401
  2. LEVOTHYROXINE SODIUM. [Concomitant]
     Active Substance: LEVOTHYROXINE SODIUM
     Indication: THYROID DISORDER
     Dosage: UNK
  3. AVAPRO [Concomitant]
     Active Substance: IRBESARTAN
     Indication: HYPERTENSION
     Dosage: UNK
     Route: 048
  4. TIMOLOL MALEATE. [Interacting]
     Active Substance: TIMOLOL MALEATE
     Indication: GLAUCOMA
     Dosage: UNK
     Route: 047
     Dates: start: 2006
  5. XALATAN [Suspect]
     Active Substance: LATANOPROST
     Indication: GLAUCOMA
     Dosage: UNK
     Route: 047
     Dates: start: 2008, end: 2011
  6. XALATAN [Suspect]
     Active Substance: LATANOPROST
     Indication: GLAUCOMA
     Dosage: 1X/DAY (IN THE EVENING)
     Route: 047
     Dates: start: 201111
  7. XALATAN [Suspect]
     Active Substance: LATANOPROST
     Dosage: 0.005 % INTILL 1 DROP QHS OU
  8. TRUSOPT [Interacting]
     Active Substance: DORZOLAMIDE HYDROCHLORIDE
     Indication: GLAUCOMA
     Dosage: UNK
     Route: 047
     Dates: start: 2006, end: 2008
  9. LEVOTHYROXINE SODIUM. [Concomitant]
     Active Substance: LEVOTHYROXINE SODIUM
     Indication: HYPOTHYROIDISM
  10. LATANOPROST. [Suspect]
     Active Substance: LATANOPROST
     Indication: GLAUCOMA
     Dosage: UNK, DAILY
     Route: 047
     Dates: start: 201111, end: 2011
  11. SYNTHROID [Concomitant]
     Active Substance: LEVOTHYROXINE SODIUM
     Indication: THYROID DISORDER
     Dosage: 0.75 UG, DAILY
     Route: 048
  12. LOSARTAN [Concomitant]
     Active Substance: LOSARTAN
     Indication: HYPERTENSION
     Dosage: 100 MG, DAILY
     Route: 048
  13. TIMOLOL MALEATE. [Interacting]
     Active Substance: TIMOLOL MALEATE
     Indication: INTRAOCULAR PRESSURE INCREASED
     Dosage: 1 DROP IN EACH EYE TWO TIMES A DAY
     Route: 047
     Dates: start: 2007, end: 2008
  14. SYNTHROID [Concomitant]
     Active Substance: LEVOTHYROXINE SODIUM
     Indication: HYPOTHYROIDISM

REACTIONS (29)
  - Blindness [Unknown]
  - Reading disorder [Not Recovered/Not Resolved]
  - Eyelid oedema [Not Recovered/Not Resolved]
  - Tooth disorder [Unknown]
  - Intraocular pressure increased [Unknown]
  - Thyroid disorder [Unknown]
  - Mental impairment [Recovered/Resolved]
  - Pain [Unknown]
  - Poor quality drug administered [Unknown]
  - Growth of eyelashes [Recovered/Resolved]
  - Body height decreased [Unknown]
  - Fear [Recovering/Resolving]
  - Feeling abnormal [Recovering/Resolving]
  - Cataract [Unknown]
  - Emphysema [Unknown]
  - Hyperthyroidism [Unknown]
  - Tinnitus [Recovered/Resolved]
  - Hypersensitivity [Recovering/Resolving]
  - Chest discomfort [Not Recovered/Not Resolved]
  - Dizziness [Not Recovered/Not Resolved]
  - Eyelid irritation [Not Recovered/Not Resolved]
  - Dyspnoea [Unknown]
  - Paralysis [Recovered/Resolved]
  - Dysgraphia [Recovered/Resolved]
  - Drug physiologic incompatibility [Unknown]
  - Hair disorder [Recovering/Resolving]
  - Influenza [Not Recovered/Not Resolved]
  - Alopecia [Unknown]
  - Confusional state [Recovered/Resolved]

NARRATIVE: CASE EVENT DATE: 2007
